FAERS Safety Report 10336539 (Version 1)
Quarter: 2014Q3

REPORT INFORMATION
  Report Type: Spontaneous
  Country: US (occurrence: US)
  Receive Date: 20140723
  Receipt Date: 20140723
  Transmission Date: 20150326
  Serious: Yes (Hospitalization)
  Sender: FDA-Public Use
  Company Number: US-BRISTOL-MYERS SQUIBB COMPANY-20783692

PATIENT
  Age: 63 Year
  Sex: Female
  Weight: 53.5 kg

DRUGS (1)
  1. WARFARIN SODIUM. [Suspect]
     Active Substance: WARFARIN SODIUM
     Indication: PULMONARY EMBOLISM
     Dosage: 5 MGONMONDAY,WEDNESDAY,FRIDAYANDSATURDAYALTERNATINGWITH7MGSUNDAY,TUESDAY,THURSDAY?INTERRON20FEB2014
     Route: 048
     Dates: start: 2008

REACTIONS (1)
  - International normalised ratio increased [Recovering/Resolving]

NARRATIVE: CASE EVENT DATE: 20140220
